FAERS Safety Report 23302544 (Version 1)
Quarter: 2023Q4

REPORT INFORMATION
  Report Type: Spontaneous
  Country: US (occurrence: US)
  Receive Date: 20231215
  Receipt Date: 20231215
  Transmission Date: 20240110
  Serious: No
  Sender: FDA-Public Use
  Company Number: US-BRISTOL-MYERS SQUIBB COMPANY-2023-182098

PATIENT
  Age: 85 Year
  Sex: Female
  Weight: 48.53 kg

DRUGS (1)
  1. REVLIMID [Suspect]
     Active Substance: LENALIDOMIDE
     Indication: Myelodysplastic syndrome
     Dosage: EVERY OTHER DAY FOR 3 WEEKS ON, 1 WEEK OFF
     Route: 048

REACTIONS (4)
  - Nausea [Unknown]
  - Night sweats [Unknown]
  - Haemoglobin decreased [Unknown]
  - Off label use [Unknown]
